FAERS Safety Report 9688809 (Version 1)
Quarter: 2013Q4

REPORT INFORMATION
  Report Type: Spontaneous
  Country: US (occurrence: US)
  Receive Date: 20131114
  Receipt Date: 20131114
  Transmission Date: 20140711
  Serious: No
  Sender: FDA-Public Use
  Company Number: US-BAYER-2013-138947

PATIENT
  Sex: 0

DRUGS (5)
  1. ALEVE CAPLET [Suspect]
     Indication: EAR PAIN
  2. ALEVE CAPLET [Suspect]
     Indication: PAIN IN JAW
  3. ALEVE CAPLET [Suspect]
     Indication: NECK PAIN
  4. ULTRAM [Suspect]
  5. SKELAXIN [Suspect]
     Dosage: UNK

REACTIONS (1)
  - Drug ineffective [None]
